FAERS Safety Report 9912015 (Version 2)
Quarter: 2014Q1

REPORT INFORMATION
  Report Type: Spontaneous
  Country: US (occurrence: US)
  Receive Date: 20140219
  Receipt Date: 20140219
  Transmission Date: 20141002
  Serious: No
  Sender: FDA-Public Use
  Company Number: US-MYLANLABS-PF-2013282050

PATIENT
  Age: 40 Year
  Sex: Female
  Weight: 108.86 kg

DRUGS (2)
  1. EPIPEN [Suspect]
     Indication: URTICARIA
     Dosage: 0.3 MG, UNK
     Dates: start: 201308, end: 201308
  2. ESTROGEN [Concomitant]
     Dosage: OVER THE COUNTER MEDICATION
     Dates: start: 201308, end: 201308

REACTIONS (5)
  - Drug administered at inappropriate site [Recovered/Resolved]
  - Palpitations [Recovered/Resolved]
  - Dyspnoea [Recovered/Resolved]
  - Injection site pain [Recovered/Resolved]
  - Injection site nodule [Recovered/Resolved]
